FAERS Safety Report 26075218 (Version 2)
Quarter: 2025Q4

REPORT INFORMATION
  Report Type: Report from Study
  Country: CN (occurrence: CN)
  Receive Date: 20251121
  Receipt Date: 20251229
  Transmission Date: 20260117
  Serious: Yes (Other)
  Sender: PFIZER
  Company Number: CN-PFIZER INC-PV202500135016

PATIENT
  Age: 8 Year
  Sex: Male

DRUGS (2)
  1. XYNTHA [Suspect]
     Active Substance: MOROCTOCOG ALFA
     Dosage: UNK
     Route: 042
     Dates: start: 2020
  2. XYNTHA [Suspect]
     Active Substance: MOROCTOCOG ALFA
     Dosage: 2000 IU, Q12H
     Route: 041

REACTIONS (3)
  - Nail injury [Recovering/Resolving]
  - Nail bed bleeding [Recovering/Resolving]
  - Off label use [Unknown]
